FAERS Safety Report 5360525-1 (Version None)
Quarter: 2007Q2

REPORT INFORMATION
  Report Type: 
  Country: None (occurrence: None)
  Receive Date: 20070618
  Receipt Date: 20070607
  Transmission Date: 20071010
  Serious: Yes (Other)
  Sender: FDA-Public Use
  Company Number: B0472653A

PATIENT
  Age: 2 Year
  Sex: Female

DRUGS (1)
  1. CHILDREN'S PANADOL ELIXIR 1-5 YEARS [Suspect]
     Route: 048
     Dates: start: 20070520, end: 20070520

REACTIONS (5)
  - CONVERSION DISORDER [None]
  - CRYING [None]
  - FATIGUE [None]
  - HALLUCINATION [None]
  - INSOMNIA [None]
